FAERS Safety Report 16368360 (Version 1)
Quarter: 2019Q2

REPORT INFORMATION
  Report Type: Spontaneous
  Country: US (occurrence: US)
  Receive Date: 20190529
  Receipt Date: 20190529
  Transmission Date: 20190711
  Serious: Yes (Other)
  Sender: FDA-Public Use
  Company Number: US-FRESENIUS KABI-FK201905995

PATIENT
  Age: 80 Year
  Sex: Female

DRUGS (12)
  1. MINOCYCLINE [Concomitant]
     Active Substance: MINOCYCLINE\MINOCYCLINE HYDROCHLORIDE
     Indication: KLEBSIELLA INFECTION
     Route: 042
  2. AMIKACIN. [Concomitant]
     Active Substance: AMIKACIN
     Indication: SEPSIS
  3. MINOCYCLINE [Concomitant]
     Active Substance: MINOCYCLINE\MINOCYCLINE HYDROCHLORIDE
     Indication: KLEBSIELLA BACTERAEMIA
     Route: 042
  4. MINOCYCLINE [Concomitant]
     Active Substance: MINOCYCLINE\MINOCYCLINE HYDROCHLORIDE
     Indication: SEPSIS
  5. SULFAMETHOXAZOLE/TRIMETHOPRIM [Concomitant]
     Indication: SEPSIS
  6. AMIKACIN. [Concomitant]
     Active Substance: AMIKACIN
     Indication: KLEBSIELLA INFECTION
  7. COLISTIMETHATE (MANUFACTURER UNKNOWN) [Suspect]
     Active Substance: COLISTIMETHATE SODIUM
     Indication: KLEBSIELLA BACTERAEMIA
     Route: 065
  8. COLISTIMETHATE (MANUFACTURER UNKNOWN) [Suspect]
     Active Substance: COLISTIMETHATE SODIUM
     Indication: SEPSIS
  9. SULFAMETHOXAZOLE/TRIMETHOPRIM [Concomitant]
     Indication: KLEBSIELLA INFECTION
  10. COLISTIMETHATE (MANUFACTURER UNKNOWN) [Suspect]
     Active Substance: COLISTIMETHATE SODIUM
     Indication: KLEBSIELLA INFECTION
  11. SULFAMETHOXAZOLE/TRIMETHOPRIM [Concomitant]
     Indication: KLEBSIELLA BACTERAEMIA
  12. AMIKACIN. [Concomitant]
     Active Substance: AMIKACIN
     Indication: KLEBSIELLA BACTERAEMIA
     Route: 065

REACTIONS (1)
  - Acute kidney injury [Unknown]
